FAERS Safety Report 7517136-9 (Version None)
Quarter: 2011Q2

REPORT INFORMATION
  Report Type: 
  Country: None (occurrence: None)
  Receive Date: 20110601
  Receipt Date: 20110526
  Transmission Date: 20111010
  Serious: Yes (Hospitalization)
  Sender: FDA-Public Use
  Company Number: CH-GILEAD-2011-0039870

PATIENT
  Age: 18 Year
  Sex: Female

DRUGS (2)
  1. KALETRA [Suspect]
     Indication: PROPHYLAXIS AGAINST HIV INFECTION
     Route: 048
     Dates: start: 20090427, end: 20090508
  2. TRUVADA [Suspect]
     Indication: PROPHYLAXIS AGAINST HIV INFECTION
     Route: 048
     Dates: start: 20090427, end: 20090508

REACTIONS (5)
  - EOSINOPHILIA [None]
  - C-REACTIVE PROTEIN INCREASED [None]
  - LIVER INJURY [None]
  - TRANSAMINASES INCREASED [None]
  - LIVER FUNCTION TEST ABNORMAL [None]
